FAERS Safety Report 6628278-4 (Version None)
Quarter: 2010Q1

REPORT INFORMATION
  Report Type: 
  Country: None (occurrence: None)
  Receive Date: 20100311
  Receipt Date: 20100304
  Transmission Date: 20100710
  Serious: Yes (Life-Threatening, Hospitalization)
  Sender: FDA-Public Use
  Company Number: FR-PERRIGO-10FR007679

PATIENT

DRUGS (5)
  1. ACETAMINOPHEN SLOW RELEASE [Suspect]
     Indication: INTENTIONAL OVERDOSE
     Dosage: UNKNOWN
     Route: 048
  2. PROPRANOLOL [Suspect]
     Indication: INTENTIONAL OVERDOSE
     Dosage: 2 G, SINGLE
     Route: 048
  3. PAROXETINE HCL [Suspect]
     Indication: INTENTIONAL OVERDOSE
     Dosage: UNKNOWN
     Route: 048
  4. DEXTROPROPOXYPHENE [Suspect]
     Indication: INTENTIONAL OVERDOSE
     Dosage: UNKNOWN
     Route: 048
  5. MEPROBAMATE [Suspect]
     Indication: INTENTIONAL OVERDOSE
     Dosage: UNKNOWN
     Route: 048

REACTIONS (3)
  - CARDIAC ARREST [None]
  - MULTIPLE DRUG OVERDOSE [None]
  - SHOCK [None]
